FAERS Safety Report 13194300 (Version 1)
Quarter: 2017Q1

REPORT INFORMATION
  Report Type: Spontaneous
  Country: US (occurrence: US)
  Receive Date: 20170207
  Receipt Date: 20170207
  Transmission Date: 20170428
  Serious: Yes (Other)
  Sender: FDA-Public Use
  Company Number: US-JAZZ-2016-US-023111

PATIENT
  Age: 60 Year
  Sex: Female

DRUGS (18)
  1. CRESTOR [Concomitant]
     Active Substance: ROSUVASTATIN CALCIUM
  2. ZETIA [Concomitant]
     Active Substance: EZETIMIBE
  3. XYREM [Suspect]
     Active Substance: SODIUM OXYBATE
     Dosage: 3 G, BID
     Route: 048
     Dates: start: 2016, end: 2016
  4. CALCIUM                            /00060701/ [Concomitant]
     Active Substance: CALCIUM
  5. XYREM [Suspect]
     Active Substance: SODIUM OXYBATE
     Indication: CATAPLEXY
     Dosage: 2.5 G, BID
     Route: 048
     Dates: start: 2016, end: 2016
  6. FISH OIL                           /00492901/ [Concomitant]
     Active Substance: COD LIVER OIL
  7. XYREM [Suspect]
     Active Substance: SODIUM OXYBATE
     Dosage: UNK
  8. ASPIRIN                            /00002701/ [Concomitant]
     Active Substance: ASPIRIN
  9. BENADRYL [Concomitant]
     Active Substance: DIPHENHYDRAMINE HYDROCHLORIDE
  10. TOFRANIL PAMOATO [Concomitant]
     Active Substance: IMIPRAMINE PAMOATE
     Indication: CATAPLEXY
  11. GREEN TEA                          /01578101/ [Concomitant]
  12. VITAMIN C [Concomitant]
     Active Substance: ASCORBIC ACID
  13. XYREM [Suspect]
     Active Substance: SODIUM OXYBATE
     Indication: NARCOLEPSY
     Dosage: 2.25 G, BID
     Route: 048
     Dates: start: 201610, end: 2016
  14. ADVIL (MEFENAMIC ACID) [Concomitant]
     Active Substance: MEFENAMIC ACID
  15. GLUCOSAMINE                        /00943602/ [Concomitant]
  16. OMEPRAZOLE                         /00661202/ [Concomitant]
  17. PRAMIPEXOLE                        /01356402/ [Concomitant]
  18. VITAMIN D3 [Concomitant]
     Active Substance: CHOLECALCIFEROL

REACTIONS (9)
  - Unevaluable event [Unknown]
  - Abdominal discomfort [Unknown]
  - Dry mouth [Unknown]
  - Cataplexy [Unknown]
  - Unevaluable event [Unknown]
  - Chest discomfort [Unknown]
  - Unevaluable event [Unknown]
  - Dyspnoea [Unknown]
  - Somnolence [Unknown]

NARRATIVE: CASE EVENT DATE: 2016
